FAERS Safety Report 11800827 (Version 1)
Quarter: 2015Q4

REPORT INFORMATION
  Report Type: Spontaneous
  Country: US (occurrence: US)
  Receive Date: 20151204
  Receipt Date: 20151204
  Transmission Date: 20160305
  Serious: No
  Sender: FDA-Public Use
  Company Number: US-THE MEDICINES COMPANY-US-MDCO-15-00402

PATIENT

DRUGS (4)
  1. ORBACTIV [Suspect]
     Active Substance: ORITAVANCIN
     Indication: ARTHRITIS INFECTIVE
  2. ORBACTIV [Suspect]
     Active Substance: ORITAVANCIN
     Indication: INFECTION
  3. ORBACTIV [Suspect]
     Active Substance: ORITAVANCIN
     Indication: BACTERAEMIA
     Dosage: NOT REPORTED
  4. ORBACTIV [Suspect]
     Active Substance: ORITAVANCIN
     Indication: ENTEROCOCCAL INFECTION

REACTIONS (2)
  - Off label use [Unknown]
  - No adverse event [Unknown]
